FAERS Safety Report 20338336 (Version 2)
Quarter: 2022Q2

REPORT INFORMATION
  Report Type: Spontaneous
  Country: BR (occurrence: BR)
  Receive Date: 20220115
  Receipt Date: 20220401
  Transmission Date: 20220721
  Serious: Yes (Other)
  Sender: FDA-Public Use
  Company Number: BR-NOVARTISPH-NVSC2022BR007504

PATIENT
  Age: 38 Year
  Sex: Female
  Weight: 64.8 kg

DRUGS (4)
  1. LAPATINIB [Suspect]
     Active Substance: LAPATINIB
     Indication: Breast cancer metastatic
     Dosage: 1250 MG, QD (CONTINUOUS USES DAILY)
     Route: 065
     Dates: start: 20210830
  2. LAPATINIB [Suspect]
     Active Substance: LAPATINIB
     Dosage: 250 MG, QD ((ONCE A DAY - 5 TABLETS/DAY))
     Route: 048
     Dates: start: 20210830, end: 20211209
  3. CAPECITABINE [Concomitant]
     Active Substance: CAPECITABINE
     Indication: Product used for unknown indication
     Dosage: 2500 MG, QD (FOR FOURTEEN DAYS FOLLOWED BY 7 DAYS OF PAUSE)
     Route: 065
     Dates: start: 20210830
  4. XELODA [Concomitant]
     Active Substance: CAPECITABINE
     Indication: Breast cancer metastatic
     Dosage: UNK (3 TABLETS AFTER BREAKFAST AND 2 TABLETS AFTER DINNER FOR 14 DAYS, WITH A 7-DAY BREAK)
     Route: 065
     Dates: start: 20210830, end: 20211209

REACTIONS (3)
  - Gamma-glutamyltransferase increased [Recovered/Resolved]
  - Depressed level of consciousness [Not Recovered/Not Resolved]
  - Somnolence [Not Recovered/Not Resolved]

NARRATIVE: CASE EVENT DATE: 20210923
